FAERS Safety Report 21366917 (Version 1)
Quarter: 2022Q3

REPORT INFORMATION
  Report Type: Spontaneous
  Country: US (occurrence: US)
  Receive Date: 20220923
  Receipt Date: 20220923
  Transmission Date: 20221026
  Serious: No
  Sender: FDA-Public Use
  Company Number: US-SANOFI-01278208

PATIENT
  Age: 79 Year
  Sex: Female

DRUGS (4)
  1. LANTUS SOLOSTAR [Suspect]
     Active Substance: INSULIN GLARGINE
     Indication: Type 2 diabetes mellitus
     Dosage: 38 IU, HS
  2. NOVOLOG [Concomitant]
     Active Substance: INSULIN ASPART
  3. NOVOLOG [Concomitant]
     Active Substance: INSULIN ASPART
  4. TRESIBA [Concomitant]
     Active Substance: INSULIN DEGLUDEC

REACTIONS (2)
  - Product storage error [Unknown]
  - Product use issue [Unknown]
